FAERS Safety Report 5302073-0 (Version None)
Quarter: 2007Q2

REPORT INFORMATION
  Report Type: 
  Country: None (occurrence: None)
  Receive Date: 20070419
  Receipt Date: 20070416
  Transmission Date: 20071010
  Serious: Yes (Life-Threatening, Hospitalization, Other)
  Sender: FDA-Public Use
  Company Number: 8757

PATIENT
  Age: 75 Year
  Sex: Female
  Weight: 96 kg

DRUGS (1)
  1. ALKERAN [Suspect]
     Indication: MULTIPLE MYELOMA
     Dosage: 2MG FIVE TIMES PER DAY
     Route: 048
     Dates: start: 20061210, end: 20061227

REACTIONS (8)
  - ANAEMIA [None]
  - DRUG ADMINISTRATION ERROR [None]
  - FLUID RETENTION [None]
  - HAEMOGLOBIN DECREASED [None]
  - NEUTROPENIA [None]
  - PLATELET COUNT DECREASED [None]
  - THROMBOCYTOPENIA [None]
  - WHITE BLOOD CELL COUNT DECREASED [None]
